FAERS Safety Report 4414989-8 (Version None)
Quarter: 2004Q3

REPORT INFORMATION
  Report Type: 
  Country: None (occurrence: None)
  Receive Date: 20040721
  Receipt Date: 20040705
  Transmission Date: 20050211
  Serious: Yes (Life-Threatening)
  Sender: FDA-Public Use
  Company Number: 601371

PATIENT
  Age: 17 Month
  Sex: Male
  Weight: 12 kg

DRUGS (1)
  1. ALBUMIN (HUMAN) [Suspect]
     Indication: CARDIOVASCULAR DISORDER
     Dosage: 7 ML;PRN;INTRAVENOUS
     Route: 042
     Dates: start: 20040129, end: 20040129

REACTIONS (4)
  - BRADYCARDIA [None]
  - HYPERTENSION [None]
  - INFUSION RELATED REACTION [None]
  - URTICARIA [None]
